FAERS Safety Report 25172333 (Version 1)
Quarter: 2025Q2

REPORT INFORMATION
  Report Type: Spontaneous
  Country: CN (occurrence: CN)
  Receive Date: 20250408
  Receipt Date: 20250408
  Transmission Date: 20250716
  Serious: Yes (Hospitalization)
  Sender: GE HEALTHCARE
  Company Number: CN-GE HEALTHCARE-2025CSU003971

PATIENT
  Age: 61 Year
  Sex: Female
  Weight: 87 kg

DRUGS (1)
  1. OMNIPAQUE [Suspect]
     Active Substance: IOHEXOL
     Indication: Computerised tomogram thorax
     Route: 041
     Dates: start: 20250210, end: 20250210

REACTIONS (6)
  - Mental disorder [Recovering/Resolving]
  - Conversion disorder [Recovering/Resolving]
  - Chest discomfort [Recovering/Resolving]
  - Tachypnoea [Recovering/Resolving]
  - Contrast media allergy [Recovering/Resolving]
  - Laryngeal discomfort [Recovering/Resolving]

NARRATIVE: CASE EVENT DATE: 20250210
